FAERS Safety Report 9607423 (Version 1)
Quarter: 2013Q4

REPORT INFORMATION
  Report Type: Spontaneous
  Country: GB (occurrence: GB)
  Receive Date: 20131009
  Receipt Date: 20131009
  Transmission Date: 20140711
  Serious: Yes (Other)
  Sender: FDA-Public Use
  Company Number: GB-ACCORD-019672

PATIENT
  Age: 34 Year
  Sex: Female

DRUGS (9)
  1. OMEPRAZOLE [Suspect]
     Indication: REGURGITATION
     Dosage: 20 MG, DAILY
     Route: 048
     Dates: start: 20130806, end: 20130816
  2. OLANZAPINE [Concomitant]
     Dosage: UNK
  3. CLOZARIL [Suspect]
     Indication: SCHIZOAFFECTIVE DISORDER
     Dosage: ON 03-07-2013 RECEIVED 400 MG AND ALSO RECEIVED 300 MG ON UNKNOWN DATE.
     Route: 048
     Dates: start: 20130702
  4. GLIMEPIRIDE [Suspect]
     Indication: TYPE 2 DIABETES MELLITUS
     Dosage: 2 MG DAILY
     Route: 048
     Dates: start: 20130802, end: 20130816
  5. LAXIDE [Concomitant]
     Indication: CONSTIPATION
     Dosage: UNK
  6. SODIUM VALPROATE [Concomitant]
     Indication: MOOD SWINGS
     Dosage: 1.5 G, DAILY
     Route: 048
  7. BECLOMETHASONE DIPROPIONATE [Concomitant]
     Dosage: UNK
  8. METFORMIN [Concomitant]
     Indication: TYPE 2 DIABETES MELLITUS
     Dosage: 2 G, DAILY
     Route: 048
  9. PROMETHAZINE [Concomitant]
     Indication: INSOMNIA
     Dosage: 150 MG, DAILY
     Route: 048
     Dates: start: 20130516

REACTIONS (7)
  - Alanine aminotransferase increased [Recovering/Resolving]
  - Antipsychotic drug level increased [Recovered/Resolved]
  - Differential white blood cell count abnormal [Not Recovered/Not Resolved]
  - Dizziness [Recovered/Resolved]
  - Eosinophil count increased [Unknown]
  - Nausea [Recovered/Resolved]
  - Liver function test abnormal [Recovered/Resolved]
